FAERS Safety Report 26093496 (Version 2)
Quarter: 2025Q4

REPORT INFORMATION
  Report Type: Spontaneous
  Country: EU (occurrence: EU)
  Receive Date: 20251126
  Receipt Date: 20251217
  Transmission Date: 20260118
  Serious: Yes (Other)
  Sender: INCYTE
  Company Number: EU-INCYTE CORPORATION-2025IN013112

PATIENT
  Age: 69 Year

DRUGS (3)
  1. PEMAZYRE [Suspect]
     Active Substance: PEMIGATINIB
     Indication: Neoplasm
     Dosage: 13.5 MILLIGRAM, QD
     Route: 061
  2. PEMAZYRE [Suspect]
     Active Substance: PEMIGATINIB
     Indication: Myeloproliferative neoplasm
     Dosage: 9 MILLIGRAM, QD
     Route: 061
  3. PEMAZYRE [Suspect]
     Active Substance: PEMIGATINIB
     Dosage: 4.5 MILLIGRAM
     Route: 065

REACTIONS (8)
  - Serous retinopathy [Unknown]
  - Xerophthalmia [Unknown]
  - Off label use [Unknown]
  - Fatigue [Unknown]
  - Palmar-plantar erythrodysaesthesia syndrome [Unknown]
  - Nail disorder [Unknown]
  - Alopecia [Unknown]
  - Hyperphosphataemia [Unknown]
